FAERS Safety Report 12518693 (Version 3)
Quarter: 2016Q3

REPORT INFORMATION
  Report Type: Spontaneous
  Country: JP (occurrence: JP)
  Receive Date: 20160630
  Receipt Date: 20160920
  Transmission Date: 20161109
  Serious: Yes (Other)
  Sender: FDA-Public Use
  Company Number: JP-SA-2016SA118393

PATIENT
  Age: 66 Year
  Sex: Male

DRUGS (2)
  1. ALLEGRA [Suspect]
     Active Substance: FEXOFENADINE HYDROCHLORIDE
     Route: 048
  2. CEROCRAL [Suspect]
     Active Substance: IFENPRODIL
     Route: 048

REACTIONS (1)
  - Aplasia pure red cell [Unknown]
